FAERS Safety Report 9220041 (Version 1)
Quarter: 2013Q1

REPORT INFORMATION
  Report Type: Spontaneous
  Country: US (occurrence: None)
  Receive Date: 20120831
  Receipt Date: 20120831
  Transmission Date: 20140127
  Serious: No
  Sender: FDA-Public Use
  Company Number: 1000030674

PATIENT
  Age: 54 Year
  Sex: Female

DRUGS (9)
  1. DALIRESP [Suspect]
     Indication: CHRONIC OBSTRUCTIVE PULMONARY DISEASE
     Route: 048
     Dates: start: 20120516, end: 20120519
  2. SPIRIVA (TIOTROPIUM BROMIDE) (TIOTROPIUM BROMIDE) [Concomitant]
  3. ADVAIR (SERETIDE) (SERETIDE) [Concomitant]
  4. SINGULAIR [Concomitant]
  5. SIMVASTATIN (SIMVASTATIN) (SIMVASTATIN) [Concomitant]
  6. RESTORIL (TEMAZEPAM) (TEMAZEPAM) [Concomitant]
  7. XANAX (ALPRAZOLAM) (ALPRAZOLAM) [Concomitant]
  8. HYDROCODONE (HYDROCODONE) (HYDROCODONE) [Concomitant]
  9. PROAIR (FLUTICASONE PROPIONATE) (FLUTICASONE PROPIONATE) [Concomitant]

REACTIONS (2)
  - Pain in extremity [None]
  - Insomnia [None]
